FAERS Safety Report 19716389 (Version 1)
Quarter: 2021Q3

REPORT INFORMATION
  Report Type: Spontaneous
  Country: US (occurrence: US)
  Receive Date: 20210819
  Receipt Date: 20210819
  Transmission Date: 20211014
  Serious: Yes (Other)
  Sender: FDA-Public Use
  Company Number: US-AMGEN-USASP2021125777

PATIENT
  Sex: Female

DRUGS (2)
  1. MVASI [Suspect]
     Active Substance: BEVACIZUMAB-AWWB
     Dosage: (500MG WITH 1X400MG AND 1X100MG),  Q2WK
     Route: 065
  2. MVASI [Suspect]
     Active Substance: BEVACIZUMAB-AWWB
     Indication: OVARIAN CANCER
     Dosage: (500MG WITH 1X400MG AND 1X100MG),  Q2WK
     Route: 065
     Dates: start: 20210420

REACTIONS (2)
  - Clostridium difficile infection [Unknown]
  - Off label use [Unknown]
